FAERS Safety Report 9518518 (Version 1)
Quarter: 2013Q3

REPORT INFORMATION
  Report Type: Spontaneous
  Country: US (occurrence: None)
  Receive Date: 20130910
  Receipt Date: 20130910
  Transmission Date: 20140515
  Serious: No
  Sender: FDA-Public Use
  Company Number: 2013-00123

PATIENT
  Age: 33 Year
  Sex: Male
  Weight: 83.92 kg

DRUGS (3)
  1. ZICAM COLD REMEDY ORAL MIST [Suspect]
     Indication: NASOPHARYNGITIS
     Route: 048
     Dates: start: 20130904
  2. ANTIHYPERTENSIVE MEDICATION [Concomitant]
  3. ANTI-DEPRESSANT [Concomitant]

REACTIONS (1)
  - Ageusia [None]
